FAERS Safety Report 15805288 (Version 1)
Quarter: 2019Q1

REPORT INFORMATION
  Report Type: Spontaneous
  Country: US (occurrence: US)
  Receive Date: 20190110
  Receipt Date: 20190110
  Transmission Date: 20190417
  Serious: No
  Sender: FDA-Public Use
  Company Number: US-TEVA-2018-US-988269

PATIENT
  Sex: Female

DRUGS (1)
  1. SPRINTEC [Suspect]
     Active Substance: ETHINYL ESTRADIOL\NORGESTIMATE
     Indication: UTERINE LEIOMYOMA
     Dosage: DOSE STRENGTH:  NORGESTIMATE 0.250 MG AND ETHINYL ESTRADIOL 0.035 MG
     Route: 065
     Dates: start: 201806

REACTIONS (2)
  - Hypertension [Unknown]
  - Hyperhidrosis [Unknown]

NARRATIVE: CASE EVENT DATE: 2018
